FAERS Safety Report 17043604 (Version 1)
Quarter: 2019Q4

REPORT INFORMATION
  Report Type: Spontaneous
  Country: US (occurrence: US)
  Receive Date: 20191017
  Receipt Date: 20191017
  Transmission Date: 20200122
  Serious: No
  Sender: FDA-Public Use
  Company Number: None

PATIENT
  Age: 45 Year
  Sex: Male
  Weight: 119.75 kg

DRUGS (6)
  1. AMLODIPINE [Concomitant]
     Active Substance: AMLODIPINE BESYLATE
     Route: 048
  2. TRULICITY 1.5MG/0.5ML [Concomitant]
     Dosage: ?          OTHER DOSE:1.5MG/0.5ML;?
     Route: 058
  3. MIRTAZEPINE 45MG [Concomitant]
     Dosage: ?          OTHER FREQUENCY:QHS;?
     Route: 048
  4. LISINOPRIL/HCTZ 20MG/25MG [Concomitant]
     Active Substance: HYDROCHLOROTHIAZIDE\LISINOPRIL
     Dosage: ?          OTHER DOSE:20MG/25MG;?
  5. VIVITROL [Suspect]
     Active Substance: NALTREXONE
     Indication: ALCOHOLISM
     Dosage: ?          OTHER FREQUENCY:Q28DAYS;OTHER ROUTE:DEEP IM-LEFT GLUTEAL?END THERAPY: THERAPY END DATE: 18-SEP-2020?
     Route: 030
     Dates: start: 20190918
  6. METFORMIN 500MG [Concomitant]
     Active Substance: METFORMIN HYDROCHLORIDE
     Route: 048

REACTIONS (2)
  - Needle issue [None]
  - Skin mass [None]

NARRATIVE: CASE EVENT DATE: 20190918
